FAERS Safety Report 4978689-8 (Version None)
Quarter: 2006Q2

REPORT INFORMATION
  Report Type: 
  Country: None (occurrence: None)
  Receive Date: 20060414
  Receipt Date: 20060331
  Transmission Date: 20061013
  Serious: Yes (Death, Hospitalization, Other)
  Sender: FDA-Public Use
  Company Number: 2006BH007502

PATIENT
  Age: 73 Year
  Sex: Female
  Weight: 108.8633 kg

DRUGS (8)
  1. DIANEAL [Suspect]
     Indication: RENAL FAILURE CHRONIC
     Dosage: IP
     Route: 033
  2. LOPRESSOR [Concomitant]
  3. HUMULIN 70/30 [Concomitant]
  4. ASPIRIN [Concomitant]
  5. ROCALTROL [Concomitant]
  6. IMDUR [Concomitant]
  7. HEPARIN [Concomitant]
  8. PROTONIX [Concomitant]

REACTIONS (18)
  - BLOOD GLUCOSE INCREASED [None]
  - CARDIAC ARREST [None]
  - CATHETER RELATED INFECTION [None]
  - DILATATION VENTRICULAR [None]
  - DYSPNOEA [None]
  - EJECTION FRACTION DECREASED [None]
  - FLUID OVERLOAD [None]
  - GLYCOSYLATED HAEMOGLOBIN INCREASED [None]
  - HAEMATOCRIT DECREASED [None]
  - HAEMODIALYSIS [None]
  - HAEMOGLOBIN DECREASED [None]
  - HYPOXIA [None]
  - MYOCARDIAL INFARCTION [None]
  - PCO2 DECREASED [None]
  - PERITONITIS [None]
  - PNEUMONIA [None]
  - SINUS TACHYCARDIA [None]
  - THERAPY NON-RESPONDER [None]
